FAERS Safety Report 20487009 (Version 2)
Quarter: 2022Q1

REPORT INFORMATION
  Report Type: Spontaneous
  Country: CN (occurrence: CN)
  Receive Date: 20220217
  Receipt Date: 20220307
  Transmission Date: 20220423
  Serious: Yes (Hospitalization, Other)
  Sender: FDA-Public Use
  Company Number: CN-NOVARTISPH-NVSC2022CN035954

PATIENT
  Age: 62 Year
  Sex: Male

DRUGS (1)
  1. COSENTYX [Suspect]
     Active Substance: SECUKINUMAB
     Indication: Psoriasis
     Dosage: UNK, QW (2 INJECTIONS ONCE A TIME)
     Route: 065

REACTIONS (5)
  - Dermatitis exfoliative [Unknown]
  - Erythema [Unknown]
  - Oedema [Not Recovered/Not Resolved]
  - Pyrexia [Unknown]
  - Dysuria [Unknown]
